FAERS Safety Report 6704603-0 (Version None)
Quarter: 2010Q2

REPORT INFORMATION
  Report Type: 
  Country: None (occurrence: None)
  Receive Date: 20100430
  Receipt Date: 20100426
  Transmission Date: 20101027
  Serious: Yes (Death, Life-Threatening, Hospitalization, Other)
  Sender: FDA-Public Use
  Company Number: DE-ABBOTT-10P-062-0628653-00

PATIENT
  Sex: Male

DRUGS (2)
  1. HUMIRA [Suspect]
     Indication: CROHN'S DISEASE
     Route: 058
     Dates: start: 20091030, end: 20100101
  2. METHADON [Concomitant]
     Indication: DRUG DEPENDENCE

REACTIONS (17)
  - ABDOMINAL DISTENSION [None]
  - ABDOMINAL PAIN [None]
  - FLUID REPLACEMENT [None]
  - GANGRENE [None]
  - HAEMODYNAMIC INSTABILITY [None]
  - LIVIDITY [None]
  - LOBAR PNEUMONIA [None]
  - METABOLIC ACIDOSIS [None]
  - MULTI-ORGAN FAILURE [None]
  - PANCYTOPENIA [None]
  - PERITONITIS [None]
  - RENAL FAILURE [None]
  - RESPIRATORY DISORDER [None]
  - RHABDOMYOLYSIS [None]
  - SEPSIS [None]
  - SKIN HAEMORRHAGE [None]
  - STAPHYLOCOCCAL INFECTION [None]
